FAERS Safety Report 13799370 (Version 1)
Quarter: 2017Q3

REPORT INFORMATION
  Report Type: Spontaneous
  Country: US (occurrence: US)
  Receive Date: 20170727
  Receipt Date: 20170727
  Transmission Date: 20171127
  Serious: Yes (Hospitalization)
  Sender: FDA-Public Use
  Company Number: None

PATIENT
  Age: 38 Year
  Sex: Male
  Weight: 83.91 kg

DRUGS (2)
  1. DULOXETINE. [Suspect]
     Active Substance: DULOXETINE
     Indication: DEPRESSION
     Route: 048
     Dates: start: 20160317
  2. DAPSONE. [Suspect]
     Active Substance: DAPSONE
     Indication: HIDRADENITIS
     Route: 048
     Dates: start: 20150626, end: 20170626

REACTIONS (4)
  - Methaemoglobinaemia [None]
  - Suicide attempt [None]
  - Intentional product use issue [None]
  - Depression [None]

NARRATIVE: CASE EVENT DATE: 20170626
